FAERS Safety Report 25864725 (Version 1)
Quarter: 2025Q3

REPORT INFORMATION
  Report Type: Spontaneous
  Country: US (occurrence: US)
  Receive Date: 20250930
  Receipt Date: 20250930
  Transmission Date: 20251020
  Serious: Yes (Other)
  Sender: ROCHE
  Company Number: US-ROCHE-10000392233

PATIENT
  Age: 55 Year
  Sex: Female
  Weight: 69 kg

DRUGS (4)
  1. COLUMVI [Suspect]
     Active Substance: GLOFITAMAB-GXBM
     Indication: Diffuse large B-cell lymphoma
     Route: 042
     Dates: start: 20250912
  2. OBINUTUZUMAB [Suspect]
     Active Substance: OBINUTUZUMAB
     Indication: Diffuse large B-cell lymphoma
     Route: 065
     Dates: start: 20250904
  3. GEMCITABINE [Suspect]
     Active Substance: GEMCITABINE
     Indication: Diffuse large B-cell lymphoma
     Route: 065
     Dates: start: 20250904
  4. OXALIPLATIN [Suspect]
     Active Substance: OXALIPLATIN
     Indication: Diffuse large B-cell lymphoma
     Route: 065
     Dates: start: 20250904

REACTIONS (7)
  - Cytotoxic oedema [Unknown]
  - Hemiparesis [Recovered/Resolved]
  - Cytokine release syndrome [Unknown]
  - Haemorrhage intracranial [Not Recovered/Not Resolved]
  - Vasogenic cerebral oedema [Unknown]
  - Cerebral haemorrhage [Unknown]
  - Facial paralysis [Recovered/Resolved]

NARRATIVE: CASE EVENT DATE: 20250913
